FAERS Safety Report 6547533-X (Version None)
Quarter: 2010Q1

REPORT INFORMATION
  Report Type: 
  Country: None (occurrence: None)
  Receive Date: 20100122
  Receipt Date: 20100113
  Transmission Date: 20100710
  Serious: Yes (Hospitalization)
  Sender: FDA-Public Use
  Company Number: US-ABBOTT-10P-163-0619951-00

PATIENT
  Sex: Female
  Weight: 78.542 kg

DRUGS (9)
  1. HUMIRA [Suspect]
     Indication: CROHN'S DISEASE
     Dates: start: 20090101
  2. HUMIRA [Suspect]
     Dosage: 80 MG LOADING DOSE
     Dates: start: 20091001, end: 20091001
  3. HUMIRA [Suspect]
     Dosage: 160 MG LOADING DOSE
     Dates: start: 20091001, end: 20091001
  4. AMLODIPINE [Concomitant]
     Indication: HYPERTENSION
  5. LISINOPRIL [Concomitant]
     Indication: HYPERTENSION
  6. CARBEMAZAPINE [Concomitant]
     Indication: CONVULSION
  7. LEVOXYL [Concomitant]
     Indication: HYPOTHYROIDISM
  8. UNKNOWN ALLERGY PILLS [Concomitant]
     Indication: HYPERSENSITIVITY
  9. COUMADIN [Concomitant]
     Indication: DRUG USE FOR UNKNOWN INDICATION

REACTIONS (5)
  - ABDOMINAL PAIN UPPER [None]
  - CONSTIPATION [None]
  - DEHYDRATION [None]
  - NAUSEA [None]
  - URINARY TRACT INFECTION [None]
